FAERS Safety Report 10576093 (Version 1)
Quarter: 2014Q4

REPORT INFORMATION
  Report Type: Spontaneous
  Country: US (occurrence: None)
  Receive Date: 20141107
  Receipt Date: 20141107
  Transmission Date: 20150529
  Serious: Yes (Hospitalization)
  Sender: FDA-Public Use
  Company Number: PR 2031

PATIENT
  Age: 74 Year
  Sex: Male

DRUGS (20)
  1. TRINOSIN [Concomitant]
     Active Substance: ADENOSINE TRIPHOSPHATE DISODIUM
  2. EXFORGE [Concomitant]
     Active Substance: AMLODIPINE BESYLATE\VALSARTAN
  3. AVOLVE [Concomitant]
     Active Substance: DUTASTERIDE
  4. URIEF [Concomitant]
     Active Substance: SILODOSIN
  5. GASMOTIN [Concomitant]
     Active Substance: MOSAPRIDE CITRATE
  6. MOSAPRIDE CITRATE [Concomitant]
     Active Substance: MOSAPRIDE CITRATE
  7. NEXIUM [Concomitant]
     Active Substance: ESOMEPRAZOLE MAGNESIUM
  8. BAYASPIRIN [Concomitant]
     Active Substance: ASPIRIN
  9. ATORVASTATIN [Concomitant]
     Active Substance: ATORVASTATIN
  10. AMLODIPINE BESYLATE. [Concomitant]
     Active Substance: AMLODIPINE BESYLATE
  11. KARY UNI (PIRENOXINE) [Concomitant]
  12. ADETPHOS [Concomitant]
     Active Substance: ADENOSINE TRIPHOSPHATE
  13. MUCOSTA [Concomitant]
     Active Substance: REBAMIPIDE
  14. INTEBAN [Concomitant]
     Active Substance: INDOMETHACIN
  15. DIOVAN [Concomitant]
     Active Substance: VALSARTAN
  16. HYALEIN [Concomitant]
     Active Substance: HYALURONATE SODIUM
  17. ZOLPIDEM TARTRATE. [Concomitant]
     Active Substance: ZOLPIDEM TARTRATE
  18. MYSLEE [Concomitant]
     Active Substance: ZOLPIDEM TARTRATE
  19. ZIOPTAN [Suspect]
     Active Substance: TAFLUPROST
     Indication: GLAUCOMA
     Dates: start: 20140106
  20. LANSPORAZOLE [Concomitant]

REACTIONS (3)
  - Hypoaesthesia [None]
  - Gastric cancer [None]
  - Nasal congestion [None]

NARRATIVE: CASE EVENT DATE: 20140417
